FAERS Safety Report 16048694 (Version 3)
Quarter: 2019Q1

REPORT INFORMATION
  Report Type: Spontaneous
  Country: IL (occurrence: IL)
  Receive Date: 20190307
  Receipt Date: 20190308
  Transmission Date: 20190418
  Serious: Yes (Hospitalization)
  Sender: FDA-Public Use
  Company Number: IL-FOUNDATIONCONSUMERHC-2018-IL-000044

PATIENT
  Age: 38 Year
  Sex: Female
  Weight: 57 kg

DRUGS (1)
  1. LEVONORGESTREL (UNSPECIFIED) [Suspect]
     Active Substance: LEVONORGESTREL
     Indication: POST COITAL CONTRACEPTION
     Dosage: (1.5 MG,SINGLE ONE TABLET DOSE)
     Route: 048
     Dates: start: 20180714, end: 20180714

REACTIONS (5)
  - Drug ineffective [Unknown]
  - Placenta praevia haemorrhage [Recovered/Resolved]
  - Amniotic fluid index decreased [Recovered/Resolved]
  - Amniotic fluid volume decreased [Recovered/Resolved]
  - Pregnancy after post coital contraception [Unknown]

NARRATIVE: CASE EVENT DATE: 2018
